FAERS Safety Report 23338017 (Version 1)
Quarter: 2023Q4

REPORT INFORMATION
  Report Type: Spontaneous
  Country: US (occurrence: US)
  Receive Date: 20231226
  Receipt Date: 20231226
  Transmission Date: 20240110
  Serious: Yes (Other)
  Sender: FDA-Public Use
  Company Number: US-BAYER-2023A178863

PATIENT
  Age: 76 Year
  Sex: Female

DRUGS (2)
  1. ALKA-SELTZER PLUS SEVERE COLD POWERFAST FIZZ NIGHT [Suspect]
     Active Substance: ASPIRIN\DEXTROMETHORPHAN HYDROBROMIDE\DOXYLAMINE SUCCINATE\PHENYLEPHRINE BITARTRATE
     Indication: Allergic respiratory symptom
     Dosage: 2 DF
     Dates: start: 20231211, end: 20231211
  2. ALKA-SELTZER PLUS SEVERE COLD POWERFAST FIZZ NIGHT [Suspect]
     Active Substance: ASPIRIN\DEXTROMETHORPHAN HYDROBROMIDE\DOXYLAMINE SUCCINATE\PHENYLEPHRINE BITARTRATE
     Indication: Nasopharyngitis

REACTIONS (4)
  - Angina pectoris [Recovering/Resolving]
  - Contraindicated product administered [Recovering/Resolving]
  - Adverse drug reaction [Recovering/Resolving]
  - Abdominal discomfort [Recovering/Resolving]

NARRATIVE: CASE EVENT DATE: 20231211
